FAERS Safety Report 25674887 (Version 1)
Quarter: 2025Q3

REPORT INFORMATION
  Report Type: Spontaneous
  Country: US (occurrence: US)
  Receive Date: 20250813
  Receipt Date: 20250813
  Transmission Date: 20251021
  Serious: Yes (Life-Threatening, Other)
  Sender: CELLTRION
  Company Number: US-CELLTRION INC.-2025US027297

PATIENT

DRUGS (13)
  1. BEVACIZUMAB [Suspect]
     Active Substance: BEVACIZUMAB
     Indication: Neurofibromatosis
     Dosage: 5 MG/KG, EVERY 4 WEEKS
     Dates: start: 2016
  2. ASPIRIN [Concomitant]
     Active Substance: ASPIRIN
     Indication: Arrhythmia prophylaxis
  3. ASPIRIN [Concomitant]
     Active Substance: ASPIRIN
  4. HEPARIN [Concomitant]
     Active Substance: HEPARIN SODIUM
     Indication: Arrhythmia prophylaxis
     Route: 042
  5. AMIODARONE [Concomitant]
     Active Substance: AMIODARONE
     Indication: Arrhythmia prophylaxis
     Route: 042
  6. METOPROLOL SUCCINATE [Concomitant]
     Active Substance: METOPROLOL SUCCINATE
  7. LOSARTAN [Concomitant]
     Active Substance: LOSARTAN
  8. LOSARTAN [Concomitant]
     Active Substance: LOSARTAN
  9. SPIRONOLACTONE [Concomitant]
     Active Substance: SPIRONOLACTONE
  10. ATORVASTATIN [Concomitant]
     Active Substance: ATORVASTATIN
  11. TICAGRELOR [Concomitant]
     Active Substance: TICAGRELOR
  12. DILTIAZEM [Concomitant]
     Active Substance: DILTIAZEM
  13. EMPAGLIFLOZIN [Concomitant]
     Active Substance: EMPAGLIFLOZIN

REACTIONS (8)
  - Ventricular fibrillation [Unknown]
  - Cardiac arrest [Unknown]
  - Acute myocardial infarction [Unknown]
  - Arteriosclerosis [Unknown]
  - Endothelial dysfunction [Unknown]
  - Proteinuria [Unknown]
  - Hypertension [Unknown]
  - Intentional product use issue [Unknown]
